FAERS Safety Report 9879384 (Version 1)
Quarter: 2014Q1

REPORT INFORMATION
  Report Type: Spontaneous
  Country: US (occurrence: US)
  Receive Date: 20140206
  Receipt Date: 20140206
  Transmission Date: 20141002
  Serious: Yes (Life-Threatening, Hospitalization, Other)
  Sender: FDA-Public Use
  Company Number: US-B.I. PHARMACEUTICALS,INC./RIDGEFIELD-2014-BI-04323GD

PATIENT
  Age: 59 Year
  Sex: Male

DRUGS (3)
  1. IPRATROPIUMBROMID [Suspect]
     Indication: STATUS ASTHMATICUS
  2. ALBUTEROL [Suspect]
     Indication: STATUS ASTHMATICUS
  3. METHYLPREDNISOLONE [Suspect]
     Indication: STATUS ASTHMATICUS

REACTIONS (10)
  - Respiratory failure [Recovered/Resolved]
  - No therapeutic response [Recovered/Resolved]
  - Hypotension [Recovered/Resolved]
  - Respiratory acidosis [Recovered/Resolved]
  - Shock [Recovered/Resolved]
  - Agitation [Unknown]
  - Pyrexia [Unknown]
  - Sinusitis [Unknown]
  - Neuromyopathy [Recovered/Resolved]
  - Asthenia [Recovered/Resolved]
